FAERS Safety Report 25570580 (Version 2)
Quarter: 2025Q3

REPORT INFORMATION
  Report Type: Spontaneous
  Country: US (occurrence: US)
  Receive Date: 20250717
  Receipt Date: 20250729
  Transmission Date: 20251021
  Serious: Yes (Other)
  Sender: CSL BEHRING
  Company Number: US-BEH-2025212618

PATIENT
  Age: 58 Year
  Sex: Female

DRUGS (1)
  1. HIZENTRA [Suspect]
     Active Substance: HUMAN IMMUNOGLOBULIN G
     Indication: Immunodeficiency
     Dosage: 10 G, QW
     Route: 058
     Dates: start: 202403

REACTIONS (5)
  - Lower respiratory tract infection [Unknown]
  - Nephrolithiasis [Unknown]
  - Necrotising fasciitis [Unknown]
  - Oropharyngeal pain [Unknown]
  - Head discomfort [Unknown]

NARRATIVE: CASE EVENT DATE: 20250101
